FAERS Safety Report 4409789-9 (Version None)
Quarter: 2004Q3

REPORT INFORMATION
  Report Type: 
  Country: None (occurrence: None)
  Receive Date: 20040726
  Receipt Date: 20040713
  Transmission Date: 20050211
  Serious: Yes (Other)
  Sender: FDA-Public Use
  Company Number: HQWYE186316JUL04

PATIENT
  Age: 35 Year
  Sex: Female

DRUGS (4)
  1. RAPAMUNE [Suspect]
     Indication: IMMUNOSUPPRESSANT DRUG THERAPY
  2. TACROLIMUS (TACROLIMUS, ) [Suspect]
     Indication: IMMUNOSUPPRESSANT DRUG THERAPY
  3. ZENAPAX [Concomitant]
  4. INSULIN [Concomitant]

REACTIONS (5)
  - DECREASED INSULIN REQUIREMENT [None]
  - GLYCOSYLATED HAEMOGLOBIN INCREASED [None]
  - HEPATIC STEATOSIS [None]
  - HYPERINSULINAEMIA [None]
  - LIVER TRANSPLANT [None]
